FAERS Safety Report 7357603-4 (Version None)
Quarter: 2011Q1

REPORT INFORMATION
  Report Type: 
  Country: None (occurrence: None)
  Receive Date: 20110317
  Receipt Date: 20110307
  Transmission Date: 20110831
  Serious: Yes (Other)
  Sender: FDA-Public Use
  Company Number: CA-JNJFOC-20110304003

PATIENT
  Sex: Male
  Weight: 117 kg

DRUGS (4)
  1. REMICADE [Suspect]
     Indication: ANKYLOSING SPONDYLITIS
     Route: 042
  2. ADVIL LIQUI-GELS [Suspect]
     Indication: NECK PAIN
     Route: 065
  3. ADVIL LIQUI-GELS [Suspect]
     Indication: BACK PAIN
     Route: 065
  4. REMICADE [Suspect]
     Indication: CROHN'S DISEASE
     Route: 042

REACTIONS (5)
  - NAUSEA [None]
  - NECK PAIN [None]
  - BACK PAIN [None]
  - VOMITING [None]
  - DIARRHOEA [None]
